FAERS Safety Report 4372557-0 (Version None)
Quarter: 2004Q2

REPORT INFORMATION
  Report Type: 
  Country: None (occurrence: None)
  Receive Date: 20040526
  Receipt Date: 20040523
  Transmission Date: 20050107
  Serious: Yes (Death)
  Sender: FDA-Public Use
  Company Number: S03-341-638

PATIENT
  Age: 72 Year
  Sex: Male
  Weight: 60 kg

DRUGS (13)
  1. VELCADE [Suspect]
     Indication: MULTIPLE MYELOMA
     Dosage: 2 MG BIW; INTRAVENOUS BOLUS
     Route: 040
     Dates: start: 20030629, end: 20030925
  2. AEROVENT (IPRATROPIUM BROMIDE) [Concomitant]
  3. CONCOR (BISOPROLOL FUMARATE) [Concomitant]
  4. ELTROXIN (LEVOTHYROXINE SODIUM) [Concomitant]
  5. FUROSEMIDE [Concomitant]
  6. MCR (MORPHINE SULFATE) [Concomitant]
  7. MEGACE [Concomitant]
  8. OPTALGIN (METAMIZOLE SODIUM) [Concomitant]
  9. OXYGEN [Concomitant]
  10. RESPRIM (BACTRIM) [Concomitant]
  11. TRIBEMIN [Concomitant]
  12. VASODIP [Concomitant]
  13. VENTOLIN [Concomitant]

REACTIONS (11)
  - ANAEMIA [None]
  - CARDIAC ARREST [None]
  - DYSPNOEA [None]
  - GASTROINTESTINAL HAEMORRHAGE [None]
  - HAEMATURIA [None]
  - HYPERCALCAEMIA [None]
  - MELAENA [None]
  - MULTI-ORGAN FAILURE [None]
  - PULMONARY CONGESTION [None]
  - RENAL IMPAIRMENT [None]
  - RESPIRATORY TRACT INFECTION [None]
